FAERS Safety Report 6037723-7 (Version None)
Quarter: 2009Q1

REPORT INFORMATION
  Report Type: 
  Country: None (occurrence: None)
  Receive Date: 20090113
  Receipt Date: 20090102
  Transmission Date: 20090719
  Serious: Yes (Other)
  Sender: FDA-Public Use
  Company Number: 233202K08USA

PATIENT
  Age: 45 Year
  Sex: Female

DRUGS (2)
  1. REBIF [Suspect]
     Indication: MULTIPLE SCLEROSIS
     Dosage: 44 MCG, 3 IN 1 WEEKS, SUBCUTANEOUS
     Dates: start: 20020826
  2. UNSPECIFIED BLOOD PRESSURE MEDICATION (ANTIHYPERTENSIVES) [Concomitant]

REACTIONS (2)
  - UTERINE HAEMORRHAGE [None]
  - UTERINE LEIOMYOMA [None]
